FAERS Safety Report 15131577 (Version 1)
Quarter: 2018Q3

REPORT INFORMATION
  Report Type: Report from Study
  Country: US (occurrence: US)
  Receive Date: 20180711
  Receipt Date: 20180711
  Transmission Date: 20181010
  Serious: Yes (Other)
  Sender: FDA-Public Use
  Company Number: US-BAYER-2018-055299

PATIENT
  Age: 55 Year
  Sex: Female
  Weight: 84.81 kg

DRUGS (12)
  1. FEXOFENADINE [Concomitant]
     Active Substance: FEXOFENADINE\FEXOFENADINE HYDROCHLORIDE
     Dosage: 180 MG, BIW
     Route: 048
  2. NEXAVAR [Suspect]
     Active Substance: SORAFENIB
     Indication: ANGIOSARCOMA
     Dosage: 400 MG, BID
     Route: 048
     Dates: start: 20180313, end: 20180326
  3. VITAMIN D3 [Concomitant]
     Active Substance: CHOLECALCIFEROL
     Dosage: 1000 U, QD
     Route: 048
  4. ZINC. [Concomitant]
     Active Substance: ZINC
     Indication: NASOPHARYNGITIS
     Dosage: AS NEEDED
     Route: 048
  5. GUAIFENESIN/PSEUDOEPHEDRINE [GUAIFENESIN,PSEUDOEPHEDRINE HYDROCHLO [Concomitant]
     Route: 048
  6. LISINOPRIL. [Concomitant]
     Active Substance: LISINOPRIL
     Dosage: DAILY DOSE 40 MG
     Route: 048
  7. HYDROCHLOROTHIAZIDE. [Concomitant]
     Active Substance: HYDROCHLOROTHIAZIDE
     Dosage: DAILY DOSE 25 MG
     Route: 048
  8. HYDROCORTISONE. [Concomitant]
     Active Substance: HYDROCORTISONE
     Dosage: APPLY TO AFFECTED AREA TWO TIMES DAILY. APPLY A THIN FILM TO CLEAN, DRY SKIN AND RUB IN GENTLY
  9. PROMETHAZINE [Concomitant]
     Active Substance: PROMETHAZINE\PROMETHAZINE HYDROCHLORIDE
     Dosage: 12.5 MG, QID (EVERY SIX HOURS AS NEEDED)
     Route: 048
  10. NORVASC [Concomitant]
     Active Substance: AMLODIPINE BESYLATE
     Dosage: 5 MG, QD
     Route: 048
  11. ONDANSETRON [Concomitant]
     Active Substance: ONDANSETRON
     Dosage: DISINTEGRATING, DISSOLVE 8 MG ON TONGUE AND SWALLOW EVERY TWELVE HOURS AS NEEDED
     Route: 048
  12. POTASSIUM CHLORIDE. [Concomitant]
     Active Substance: POTASSIUM CHLORIDE
     Dosage: EXTENDED RELEASE, DAILY 20 MEQ
     Route: 048

REACTIONS (19)
  - Tearfulness [None]
  - Hypertension [Recovering/Resolving]
  - Rash [None]
  - Genital lesion [None]
  - Off label use [None]
  - Rash pruritic [None]
  - Rash papular [Not Recovered/Not Resolved]
  - Depression [None]
  - Decreased appetite [None]
  - Metastases to lung [None]
  - Mucosal inflammation [Recovered/Resolved]
  - Tongue ulceration [Recovered/Resolved]
  - Blood pressure increased [None]
  - Vulval ulceration [Recovered/Resolved]
  - Vulval disorder [Recovered/Resolved]
  - Oral disorder [Recovered/Resolved]
  - Stomatitis [None]
  - Product use in unapproved indication [None]
  - Weight decreased [None]

NARRATIVE: CASE EVENT DATE: 2018
